FAERS Safety Report 13824588 (Version 19)
Quarter: 2018Q4

REPORT INFORMATION
  Report Type: Spontaneous
  Country: CA (occurrence: CA)
  Receive Date: 20170802
  Receipt Date: 20181210
  Transmission Date: 20190204
  Serious: Yes (Other)
  Sender: FDA-Public Use
  Company Number: CA-CELLTRION INC.-2017CA008092

PATIENT

DRUGS (17)
  1. INFLECTRA [Suspect]
     Active Substance: INFLIXIMAB-DYYB
     Dosage: 400 MG,  Q (EVERY 2,6 WEEKS THEN EVERY 8 WEEKS)
     Route: 042
     Dates: start: 20180703
  2. IRON [Concomitant]
     Active Substance: IRON
     Dosage: UNK
     Route: 065
  3. INFLECTRA [Suspect]
     Active Substance: INFLIXIMAB-DYYB
     Dosage: 400 MG, CYCLIC (EVERY 4 WEEKS)
     Route: 042
     Dates: start: 20170915, end: 20170915
  4. INFLECTRA [Suspect]
     Active Substance: INFLIXIMAB-DYYB
     Dosage: 400 MG,  Q (EVERY 2,6 WEEKS THEN EVERY 8 WEEKS)
     Route: 042
     Dates: start: 20181031
  5. PREDNISONE. [Concomitant]
     Active Substance: PREDNISONE
     Dosage: 20 MG, UNK
     Route: 065
  6. VITAMIN B12 [Concomitant]
     Active Substance: CYANOCOBALAMIN
     Dosage: UNK
  7. INFLECTRA [Suspect]
     Active Substance: INFLIXIMAB-DYYB
     Dosage: 400 MG, CYCLIC (EVERY 2,6 WEEKS THEN EVERY 8 WEEKS)
     Route: 042
     Dates: start: 20171010
  8. INFLECTRA [Suspect]
     Active Substance: INFLIXIMAB-DYYB
     Dosage: 400 MG,  (EVERY 2,6 WEEKS THEN EVERY 8 WEEKS)
     Route: 042
     Dates: start: 20180410
  9. INFLECTRA [Suspect]
     Active Substance: INFLIXIMAB-DYYB
     Dosage: 400 MG,  Q (EVERY 2,6 WEEKS THEN EVERY 8 WEEKS)
     Route: 042
     Dates: start: 20180731
  10. INFLECTRA [Suspect]
     Active Substance: INFLIXIMAB-DYYB
     Dosage: 400 MG,  Q (EVERY 2,6 WEEKS THEN EVERY 8 WEEKS)
     Route: 042
     Dates: start: 20181002
  11. INFLECTRA [Suspect]
     Active Substance: INFLIXIMAB-DYYB
     Indication: COLITIS ULCERATIVE
     Dosage: 400 MG, CYCLIC (EVERY 2,6 WEEKS THEN EVERY 8 WEEKS)
     Route: 042
     Dates: start: 20170504, end: 20170817
  12. INFLECTRA [Suspect]
     Active Substance: INFLIXIMAB-DYYB
     Dosage: 400 MG,  Q (EVERY 2,6 WEEKS THEN EVERY 8 WEEKS)
     Route: 042
     Dates: start: 20180831
  13. PREDNISONE. [Concomitant]
     Active Substance: PREDNISONE
     Dosage: 40 MG, 1X/DAY
     Route: 065
  14. VITAMIN C [Concomitant]
     Active Substance: ASCORBIC ACID
     Dosage: UNK
     Route: 065
  15. VITAMIN D                          /00107901/ [Concomitant]
     Active Substance: ERGOCALCIFEROL
     Dosage: UNK
  16. OMEGA 3                            /01333901/ [Concomitant]
     Active Substance: FISH OIL\TOCOPHEROL
     Dosage: UNK
  17. CALCIUM + MAGNESIUM [Concomitant]
     Dosage: UNK

REACTIONS (39)
  - Fall [Unknown]
  - Blood bilirubin abnormal [Unknown]
  - Weight increased [Unknown]
  - Oral pain [Recovered/Resolved]
  - Pyrexia [Unknown]
  - Abdominal pain [Unknown]
  - Vertigo positional [Recovering/Resolving]
  - Diarrhoea [Unknown]
  - Nephrolithiasis [Unknown]
  - Sinusitis [Recovered/Resolved]
  - Back pain [Unknown]
  - Diverticulum intestinal [Unknown]
  - Musculoskeletal stiffness [Unknown]
  - Flank pain [Recovering/Resolving]
  - Product use issue [Unknown]
  - Drug level decreased [Unknown]
  - Faecal calprotectin increased [Unknown]
  - Chromaturia [Unknown]
  - Hepatic cyst [Unknown]
  - Haematuria [Recovering/Resolving]
  - Arthralgia [Unknown]
  - Oropharyngeal pain [Unknown]
  - Alanine aminotransferase abnormal [Unknown]
  - Abdominal tenderness [Not Recovered/Not Resolved]
  - Condition aggravated [Unknown]
  - Frequent bowel movements [Unknown]
  - Influenza [Unknown]
  - Hydronephrosis [Unknown]
  - Granuloma [Unknown]
  - Ankylosing spondylitis [Unknown]
  - Disease recurrence [Unknown]
  - Haematochezia [Recovered/Resolved]
  - Tooth abscess [Recovered/Resolved]
  - Intervertebral disc protrusion [Unknown]
  - Burning sensation [Unknown]
  - Abnormal faeces [Unknown]
  - Abdominal discomfort [Not Recovered/Not Resolved]
  - Incorrect product administration duration [Unknown]
  - Feeling abnormal [Unknown]

NARRATIVE: CASE EVENT DATE: 2017
